FAERS Safety Report 23205296 (Version 1)
Quarter: 2023Q4

REPORT INFORMATION
  Report Type: Spontaneous
  Country: US (occurrence: None)
  Receive Date: 20231120
  Receipt Date: 20231120
  Transmission Date: 20240110
  Serious: Yes (Hospitalization)
  Sender: FDA-Public Use
  Company Number: None

PATIENT
  Age: 64 Year
  Sex: Male

DRUGS (1)
  1. STELARA [Suspect]
     Active Substance: USTEKINUMAB
     Dosage: 45MG Q12W SUBCUTANEOUS?
     Route: 058

REACTIONS (4)
  - Pruritus [None]
  - Fall [None]
  - Dehydration [None]
  - COVID-19 [None]
